FAERS Safety Report 22522303 (Version 1)
Quarter: 2023Q2

REPORT INFORMATION
  Report Type: Spontaneous
  Country: RU (occurrence: RU)
  Receive Date: 20230605
  Receipt Date: 20230605
  Transmission Date: 20230722
  Serious: Yes (Other)
  Sender: FDA-Public Use
  Company Number: RU-002147023-NVSC2023RU124290

PATIENT
  Age: 43 Year
  Sex: Female

DRUGS (6)
  1. CERITINIB [Suspect]
     Active Substance: CERITINIB
     Indication: Lung adenocarcinoma
     Dosage: UNK
     Route: 065
     Dates: start: 201803
  2. CERITINIB [Suspect]
     Active Substance: CERITINIB
     Dosage: UNK
  3. LORLATINIB [Suspect]
     Active Substance: LORLATINIB
     Indication: Lung adenocarcinoma
     Dosage: 100 MG, QD
     Route: 065
     Dates: start: 201809
  4. LORLATINIB [Suspect]
     Active Substance: LORLATINIB
     Dosage: 75 MG, QD (1 MONTH)
     Route: 065
     Dates: start: 202002
  5. LORLATINIB [Suspect]
     Active Substance: LORLATINIB
     Dosage: 50 MG, QD
     Route: 065
  6. ZOLEDRONIC ACID [Concomitant]
     Active Substance: ZOLEDRONIC ACID
     Indication: Product used for unknown indication
     Dosage: UNK
     Route: 065
     Dates: start: 2016

REACTIONS (5)
  - Second primary malignancy [Unknown]
  - Breast cancer [Unknown]
  - Cognitive disorder [Unknown]
  - Mental disorder [Unknown]
  - Dizziness [Unknown]

NARRATIVE: CASE EVENT DATE: 20230216
